FAERS Safety Report 23569378 (Version 1)
Quarter: 2024Q1

REPORT INFORMATION
  Report Type: Spontaneous
  Country: US (occurrence: US)
  Receive Date: 20240227
  Receipt Date: 20240227
  Transmission Date: 20240410
  Serious: Yes (Other)
  Sender: FDA-Public Use
  Company Number: US-UPSHER-SMITH LABORATORIES, LLC-2024USL00177

PATIENT

DRUGS (2)
  1. VIGADRONE [Suspect]
     Active Substance: VIGABATRIN
     Indication: Infantile spasms
     Dosage: 300 MG (6 ML) BY MOUTH TWICE DAILY AS DIRECTED (MIX WITH WATER)
     Route: 048
     Dates: start: 20231223
  2. VIGADRONE [Suspect]
     Active Substance: VIGABATRIN
     Dosage: 300 MG, 2X/DAY (MIX WITH MILK INSTEAD OF WATER)
     Route: 048
     Dates: start: 20231223

REACTIONS (3)
  - Infantile spasms [Recovered/Resolved]
  - Regurgitation [Recovered/Resolved]
  - Product preparation error [Not Recovered/Not Resolved]
